FAERS Safety Report 11993539 (Version 2)
Quarter: 2016Q2

REPORT INFORMATION
  Report Type: Spontaneous
  Country: US (occurrence: US)
  Receive Date: 20160203
  Receipt Date: 20160504
  Transmission Date: 20160815
  Serious: No
  Sender: FDA-Public Use
  Company Number: US-009507513-1601USA011507

PATIENT
  Age: 23 Year
  Sex: Female

DRUGS (1)
  1. NEXPLANON [Suspect]
     Active Substance: ETONOGESTREL
     Dosage: UNK
     Route: 059
     Dates: start: 20151016, end: 20160127

REACTIONS (2)
  - Weight increased [Unknown]
  - Device deployment issue [Recovered/Resolved]

NARRATIVE: CASE EVENT DATE: 20151016
